FAERS Safety Report 6671623-4 (Version None)
Quarter: 2010Q2

REPORT INFORMATION
  Report Type: 
  Country: None (occurrence: None)
  Receive Date: 20100406
  Receipt Date: 20100406
  Transmission Date: 20101027
  Serious: Yes (Other)
  Sender: FDA-Public Use
  Company Number: None

PATIENT
  Sex: Female
  Weight: 51.2565 kg

DRUGS (1)
  1. AVELOX [Suspect]
     Indication: PNEUMONIA
     Dosage: 400MG ONCE A DAY PO
     Route: 048
     Dates: start: 20100213, end: 20100221

REACTIONS (4)
  - CONFUSIONAL STATE [None]
  - DISORIENTATION [None]
  - HEADACHE [None]
  - SENSORY LOSS [None]
